FAERS Safety Report 7702381-X (Version None)
Quarter: 2011Q3

REPORT INFORMATION
  Report Type: 
  Country: None (occurrence: None)
  Receive Date: 20110822
  Receipt Date: 20110809
  Transmission Date: 20111222
  Serious: Yes (Other)
  Sender: FDA-Public Use
  Company Number: US-CELGENEUS-163-21880-08100378

PATIENT

DRUGS (2)
  1. REVLIMID [Suspect]
     Dosage: 25 MILLIGRAM
     Route: 048
     Dates: start: 20080521
  2. TEMSIROLIMUS [Suspect]
     Dosage: 15 MILLIGRAM
     Route: 041
     Dates: start: 20080521

REACTIONS (1)
  - HYPOPHOSPHATAEMIA [None]
